FAERS Safety Report 11353987 (Version 1)
Quarter: 2015Q3

REPORT INFORMATION
  Report Type: Spontaneous
  Country: US (occurrence: US)
  Receive Date: 20150807
  Receipt Date: 20150807
  Transmission Date: 20151125
  Serious: No
  Sender: FDA-Public Use
  Company Number: US-JNJFOC-20141209029

PATIENT
  Age: 70 Year
  Sex: Female
  Weight: 53.52 kg

DRUGS (3)
  1. WOMENS ROGAINE [Suspect]
     Active Substance: MINOXIDIL
     Route: 061
  2. ROGAINE FOR WOMEN ES FOAM UNSCENTED [Concomitant]
     Indication: PRODUCT USED FOR UNKNOWN INDICATION
     Route: 065
  3. WOMENS ROGAINE [Suspect]
     Active Substance: MINOXIDIL
     Indication: ALOPECIA
     Dosage: THREE SPRAYS TO EACH AREA
     Route: 061

REACTIONS (3)
  - Medication residue present [Unknown]
  - Wrong technique in product usage process [Unknown]
  - Off label use [Unknown]
